FAERS Safety Report 9696996 (Version 1)
Quarter: 2013Q4

REPORT INFORMATION
  Report Type: Spontaneous
  Country: US (occurrence: US)
  Receive Date: 20131119
  Receipt Date: 20131119
  Transmission Date: 20140711
  Serious: Yes (Hospitalization, Other)
  Sender: FDA-Public Use
  Company Number: US-JNJFOC-20131105555

PATIENT
  Age: 44 Year
  Sex: Female
  Weight: 72.58 kg

DRUGS (2)
  1. CHILDRENS TYLENOL [Suspect]
     Indication: PYREXIA
     Route: 048
  2. CHILDRENS TYLENOL [Suspect]
     Indication: PAIN
     Route: 048

REACTIONS (5)
  - Increased tendency to bruise [Recovered/Resolved]
  - Thrombosis [Recovered/Resolved]
  - Blister [Recovered/Resolved]
  - Pain [Recovered/Resolved]
  - Off label use [Unknown]
